FAERS Safety Report 9364122 (Version 1)
Quarter: 2013Q2

REPORT INFORMATION
  Report Type: Spontaneous
  Country: IN (occurrence: None)
  Receive Date: 20130618
  Receipt Date: 20130618
  Transmission Date: 20140414
  Serious: Yes (Hospitalization, Other)
  Sender: FDA-Public Use
  Company Number: 2013P1007385

PATIENT
  Age: 10 Year
  Sex: Female

DRUGS (4)
  1. ISONIAZID [Suspect]
     Route: 048
  2. ETHAMBUTOL [Concomitant]
  3. RIFAMPICIN [Concomitant]
  4. PYRAZINAMIDE [Concomitant]

REACTIONS (9)
  - Pyrexia [None]
  - Chills [None]
  - Chills [None]
  - Rhinorrhoea [None]
  - Cough [None]
  - Dyspnoea [None]
  - Pain [None]
  - Nausea [None]
  - Nasal obstruction [None]
